FAERS Safety Report 22652190 (Version 1)
Quarter: 2023Q2

REPORT INFORMATION
  Report Type: Spontaneous
  Country: US (occurrence: US)
  Receive Date: 20230628
  Receipt Date: 20230628
  Transmission Date: 20230721
  Serious: No
  Sender: FDA-Public Use
  Company Number: US-PFIZER INC-202300233616

PATIENT
  Age: 77 Year
  Sex: Male

DRUGS (2)
  1. BRAFTOVI [Suspect]
     Active Substance: ENCORAFENIB
     Indication: Malignant melanoma
     Dosage: 300 MG, 1X/DAY (TAKE 4 CAPSULES BY MOUTH ONCE DAILY WITH OR WITHOUT FOOD)
     Route: 048
  2. MEKTOVI [Suspect]
     Active Substance: BINIMETINIB
     Indication: Malignant melanoma
     Dosage: 30 MG, 2X/DAY (TAKE 2 TABLETS BY MOUTH TWICE DAILY APPROXIMATELY 12 HOURS APART)
     Route: 048

REACTIONS (1)
  - Abdominal pain [Unknown]
